FAERS Safety Report 7349507-8 (Version None)
Quarter: 2011Q1

REPORT INFORMATION
  Report Type: 
  Country: None (occurrence: None)
  Receive Date: 20110304
  Receipt Date: 20100506
  Transmission Date: 20110831
  Serious: Yes (Other)
  Sender: FDA-Public Use
  Company Number: JP-20100016

PATIENT
  Sex: Male

DRUGS (3)
  1. CISPLATIN [Suspect]
     Indication: THERAPEUTIC EMBOLISATION
     Dosage: 25 MG (25 MG, 1 IN 1 TOTAL)
     Route: 013
  2. GELATIN SPONGE PARTICLES (GELATIN) [Suspect]
     Indication: THERAPEUTIC EMBOLISATION
     Route: 013
  3. LIPIODOL (ETHIODIZED OIL) [Suspect]
     Indication: THERAPEUTIC EMBOLISATION
     Dosage: 2.5 ML (2.5 ML, 1 IN 1 TOTAL)
     Route: 013

REACTIONS (7)
  - SKIN ULCER [None]
  - RASH [None]
  - OFF LABEL USE [None]
  - HEPATIC NEOPLASM MALIGNANT [None]
  - PAIN [None]
  - ABDOMINAL PAIN UPPER [None]
  - NEOPLASM MALIGNANT [None]
